FAERS Safety Report 16669977 (Version 3)
Quarter: 2019Q3

REPORT INFORMATION
  Report Type: Report from Study
  Country: JP (occurrence: JP)
  Receive Date: 20190805
  Receipt Date: 20190906
  Transmission Date: 20191004
  Serious: Yes (Hospitalization, Other)
  Sender: FDA-Public Use
  Company Number: JP-BRISTOL-MYERS SQUIBB COMPANY-BMS-2019-075985

PATIENT
  Age: 44 Year
  Sex: Female
  Weight: 54.4 kg

DRUGS (6)
  1. FASLODEX [Concomitant]
     Active Substance: FULVESTRANT
     Indication: PRODUCT USED FOR UNKNOWN INDICATION
     Dosage: 500 MG, Q4W
     Route: 030
     Dates: start: 20190710, end: 20190724
  2. ANTEBATE [Concomitant]
     Active Substance: BETAMETHASONE DIPROPIONATE
     Indication: SKIN DISORDER PROPHYLAXIS
     Dosage: UNK, PRN
     Route: 051
     Dates: start: 20190724
  3. NIVOLUMAB [Suspect]
     Active Substance: NIVOLUMAB
     Indication: BREAST CANCER
     Dosage: 240 MILLIGRAM
     Route: 065
     Dates: start: 20190710, end: 20190724
  4. LOPERAMIDE HYDROCHLORIDE. [Concomitant]
     Active Substance: LOPERAMIDE HYDROCHLORIDE
     Indication: DIARRHOEA
     Dosage: 1 MG, PRN
     Route: 048
     Dates: start: 20190711
  5. LEUPLIN [Concomitant]
     Active Substance: LEUPROLIDE ACETATE
     Indication: PRODUCT USED FOR UNKNOWN INDICATION
     Dosage: 3.75 MG, Q4W
     Route: 058
     Dates: start: 20190710, end: 20190724
  6. HYALEIN [Concomitant]
     Active Substance: HYALURONATE SODIUM
     Indication: PROPHYLAXIS
     Dosage: UNK, PRN
     Route: 047
     Dates: start: 20190724

REACTIONS (2)
  - Cholangitis acute [Recovered/Resolved]
  - Pancreatitis acute [Recovering/Resolving]

NARRATIVE: CASE EVENT DATE: 20190726
